FAERS Safety Report 8532496-8 (Version None)
Quarter: 2012Q3

REPORT INFORMATION
  Report Type: 
  Country: None (occurrence: None)
  Receive Date: 20120716
  Receipt Date: 20120716
  Transmission Date: 20120928
  Serious: Yes (Life-Threatening, Hospitalization)
  Sender: FDA-Public Use
  Company Number: None

PATIENT
  Age: 32 Year
  Sex: Female
  Weight: 58.0604 kg

DRUGS (2)
  1. YASMIN [Suspect]
     Indication: CONTRACEPTION
     Dosage: DAILY MONTHLY PO
     Route: 048
     Dates: start: 20031001, end: 20120101
  2. OCELLA 28 DAY CYCLE BARR PHARMACEUTICALS [Suspect]
     Indication: CONTRACEPTION
     Dosage: DAILY MONTHLY PO
     Route: 048
     Dates: start: 20120102, end: 20120625

REACTIONS (6)
  - PULMONARY THROMBOSIS [None]
  - MUSCULOSKELETAL CHEST PAIN [None]
  - DYSPNOEA [None]
  - COLD SWEAT [None]
  - HEADACHE [None]
  - PULMONARY OEDEMA [None]
